FAERS Safety Report 8505284-6 (Version None)
Quarter: 2012Q3

REPORT INFORMATION
  Report Type: 
  Country: None (occurrence: None)
  Receive Date: 20120712
  Receipt Date: 20120703
  Transmission Date: 20120928
  Serious: Yes (Hospitalization, Other)
  Sender: FDA-Public Use
  Company Number: US-VERTEX PHARMACEUTICALS INC.-AE-2012-008462

PATIENT
  Sex: Male

DRUGS (3)
  1. INCIVEK [Suspect]
     Indication: HEPATITIS C
     Route: 048
     Dates: start: 20120418
  2. RIBAVIRIN [Concomitant]
     Indication: HEPATITIS C
     Dates: start: 20120418
  3. PEGASYS [Concomitant]
     Indication: HEPATITIS C
     Dates: start: 20120418

REACTIONS (8)
  - DYSPNOEA EXERTIONAL [None]
  - ANAEMIA [None]
  - DRY SKIN [None]
  - BLOOD POTASSIUM DECREASED [None]
  - FATIGUE [None]
  - PRURITUS [None]
  - RASH [None]
  - SYNCOPE [None]
